FAERS Safety Report 25393232 (Version 2)
Quarter: 2025Q3

REPORT INFORMATION
  Report Type: Report from Study
  Country: GB (occurrence: GB)
  Receive Date: 20250604
  Receipt Date: 20250905
  Transmission Date: 20251021
  Serious: No
  Sender: BIOGEN
  Company Number: GB-BIOGEN-2025BI01312966

PATIENT
  Sex: Male

DRUGS (1)
  1. SPINRAZA [Suspect]
     Active Substance: NUSINERSEN
     Indication: Spinal muscular atrophy
     Route: 050

REACTIONS (1)
  - COVID-19 [Recovered/Resolved]
